FAERS Safety Report 4513371-2 (Version None)
Quarter: 2004Q4

REPORT INFORMATION
  Report Type: 
  Country: None (occurrence: None)
  Receive Date: 20041130
  Receipt Date: 20040827
  Transmission Date: 20050328
  Serious: No
  Sender: FDA-Public Use
  Company Number: US-BRISTOL-MYERS SQUIBB COMPANY-12685525

PATIENT
  Sex: Male

DRUGS (3)
  1. ERBITUX [Suspect]
     Route: 042
     Dates: start: 20040823, end: 20040823
  2. TYLENOL (CAPLET) [Concomitant]
     Indication: PREMEDICATION
     Dates: start: 20040823, end: 20040823
  3. BENADRYL [Concomitant]
     Indication: PREMEDICATION
     Dates: start: 20040823, end: 20040823

REACTIONS (2)
  - HAEMOGLOBIN DECREASED [None]
  - INTESTINAL STOMA SITE BLEEDING [None]
